FAERS Safety Report 5133101-3 (Version None)
Quarter: 2006Q4

REPORT INFORMATION
  Report Type: 
  Country: None (occurrence: None)
  Receive Date: 20061017
  Receipt Date: 20061004
  Transmission Date: 20070319
  Serious: No
  Sender: FDA-Public Use
  Company Number: SPVI-2006-01101

PATIENT
  Sex: 0

DRUGS (2)
  1. MIDODRINE (MIDODRINE) TABLET [Suspect]
     Indication: ORTHOSTATIC HYPOTENSION
  2. HEPTMINOL(HEPTAMINOL) [Suspect]
     Indication: ORTHOSTATIC HYPOTENSION

REACTIONS (1)
  - THROMBOPHLEBITIS SUPERFICIAL [None]
